FAERS Safety Report 10803993 (Version 1)
Quarter: 2015Q1

REPORT INFORMATION
  Report Type: Spontaneous
  Country: US (occurrence: US)
  Receive Date: 20150217
  Receipt Date: 20150217
  Transmission Date: 20150721
  Serious: No
  Sender: FDA-Public Use
  Company Number: US-BAXTER-2015BAX008230

PATIENT
  Sex: Female

DRUGS (2)
  1. 3% SORBITOL UROLOGIC IRRIGATING SOLUTION [Suspect]
     Active Substance: SORBITOL
     Indication: PRODUCT USED FOR UNKNOWN INDICATION
     Route: 065
  2. OSMITROL [Suspect]
     Active Substance: MANNITOL
     Indication: PRODUCT USED FOR UNKNOWN INDICATION
     Route: 065

REACTIONS (1)
  - Flatulence [Unknown]
